FAERS Safety Report 17811529 (Version 1)
Quarter: 2020Q2

REPORT INFORMATION
  Report Type: Spontaneous
  Country: US (occurrence: US)
  Receive Date: 20200520
  Receipt Date: 20200520
  Transmission Date: 20200714
  Serious: Yes (Death)
  Sender: FDA-Public Use
  Company Number: None

PATIENT
  Age: 77 Year
  Sex: Male

DRUGS (1)
  1. DOFETILIDE 500MCG CAP [Suspect]
     Active Substance: DOFETILIDE
     Route: 048
     Dates: start: 20190627

REACTIONS (1)
  - Death [None]
